FAERS Safety Report 24747492 (Version 1)
Quarter: 2024Q4

REPORT INFORMATION
  Report Type: Spontaneous
  Country: SE (occurrence: SE)
  Receive Date: 20241218
  Receipt Date: 20241218
  Transmission Date: 20250115
  Serious: Yes (Hospitalization)
  Sender: TEVA
  Company Number: None

PATIENT
  Age: 85 Year
  Sex: Female

DRUGS (10)
  1. ATORVASTATIN [Suspect]
     Active Substance: ATORVASTATIN
     Indication: Hyperlipidaemia
     Route: 048
     Dates: start: 20241010, end: 20241017
  2. PARAFFIN [Concomitant]
     Active Substance: PARAFFIN
     Indication: Product used for unknown indication
     Dosage: TIME INTERVAL: AS NECESSARY: 10-30 ML AS NEEDED; PARAFFIN EMULSION APL
     Route: 048
     Dates: start: 20211013
  3. DENTAN MINT [Concomitant]
     Indication: Product used for unknown indication
     Dosage: 1-2 TIMES DAILY
     Route: 065
     Dates: start: 20220118
  4. ASPIRIN [Concomitant]
     Active Substance: ASPIRIN
     Indication: Product used for unknown indication
     Route: 048
     Dates: start: 20210816
  5. CANDESARTAN [Concomitant]
     Active Substance: CANDESARTAN
     Indication: Product used for unknown indication
     Route: 048
     Dates: start: 20220211
  6. FUROSEMIDE [Concomitant]
     Active Substance: FUROSEMIDE
     Indication: Product used for unknown indication
     Dosage: TIME INTERVAL: AS NECESSARY: 1 TABLET AS NEEDED, 1 TIME DAILY.
     Route: 048
     Dates: start: 20180228
  7. LEVOTHYROXINE SODIUM [Concomitant]
     Active Substance: LEVOTHYROXINE SODIUM
     Indication: Product used for unknown indication
     Dosage: ACCORDING TO SCHEDULE
     Route: 048
     Dates: start: 20241014
  8. ZOPICLONE [Concomitant]
     Active Substance: ZOPICLONE
     Indication: Product used for unknown indication
     Route: 048
  9. NITROLINGUAL [Concomitant]
     Active Substance: NITROGLYCERIN
     Indication: Product used for unknown indication
     Dosage: TIME INTERVAL: AS NECESSARY: 1-2 DOSES AS NEEDED, MAXIMUM 8 DOSES PER DAY.
     Route: 060
     Dates: start: 20211106
  10. SODIUM FLUORIDE [Concomitant]
     Active Substance: SODIUM FLUORIDE
     Indication: Product used for unknown indication
     Dosage: SODIUM FLUORIDE MORNINGSIDE
     Route: 065
     Dates: start: 20220928

REACTIONS (2)
  - Liver injury [Recovering/Resolving]
  - Jaundice [Recovering/Resolving]

NARRATIVE: CASE EVENT DATE: 20241011
